FAERS Safety Report 7480613-3 (Version None)
Quarter: 2011Q2

REPORT INFORMATION
  Report Type: 
  Country: None (occurrence: None)
  Receive Date: 20110504
  Receipt Date: 20110427
  Transmission Date: 20111010
  Serious: Yes (Hospitalization)
  Sender: FDA-Public Use
  Company Number: 2011SP014530

PATIENT
  Sex: Male

DRUGS (11)
  1. ZOPITAN [Concomitant]
  2. MIRTAZAPINE [Concomitant]
  3. VALPROATE SODIUM [Concomitant]
  4. MIRTAZAPINE [Concomitant]
  5. DEXAMETHASONE [Concomitant]
  6. PIRITON [Concomitant]
  7. ACETAMINOPHEN [Concomitant]
  8. PHENYTOIN [Concomitant]
  9. TEMODAL [Suspect]
     Dosage: 150 MG/M2; 200 MG/M2;
     Dates: start: 20110328
  10. LANSOPRAZOLE [Concomitant]
  11. DIAZEPAM [Concomitant]

REACTIONS (5)
  - CONSTIPATION [None]
  - NAUSEA [None]
  - VOMITING [None]
  - KIDNEY INFECTION [None]
  - LOWER RESPIRATORY TRACT INFECTION [None]
